FAERS Safety Report 26042049 (Version 1)
Quarter: 2025Q4

REPORT INFORMATION
  Report Type: Spontaneous
  Country: CA (occurrence: CA)
  Receive Date: 20251113
  Receipt Date: 20251113
  Transmission Date: 20260117
  Serious: Yes (Hospitalization, Other)
  Sender: PURDUE
  Company Number: CA-NAPPMUNDI-GBR-2025-0130382

PATIENT
  Age: 26 Year
  Sex: Female

DRUGS (2)
  1. MORPHINE SULFATE [Suspect]
     Active Substance: MORPHINE SULFATE
     Indication: Product used for unknown indication
     Dosage: INJECT DAILY
     Route: 065
  2. MORPHINE SULFATE [Suspect]
     Active Substance: MORPHINE SULFATE
     Indication: Product used for unknown indication
     Dosage: INJECT DAILY
     Route: 065

REACTIONS (11)
  - Drug use disorder [Unknown]
  - Sepsis [Unknown]
  - Arthritis bacterial [Unknown]
  - Paraspinal abscess [Unknown]
  - Parapharyngeal space infection [Unknown]
  - Hepatitis C [Unknown]
  - Enterococcal bacteraemia [Recovered/Resolved]
  - Endocarditis [Recovered/Resolved]
  - Septic pulmonary embolism [Unknown]
  - Right ventricular failure [Recovering/Resolving]
  - Drug abuse [Unknown]

NARRATIVE: CASE EVENT DATE: 20230701
